FAERS Safety Report 7706119-1 (Version None)
Quarter: 2011Q3

REPORT INFORMATION
  Report Type: 
  Country: None (occurrence: None)
  Receive Date: 20110824
  Receipt Date: 20110819
  Transmission Date: 20111222
  Serious: Yes (Death, Hospitalization)
  Sender: FDA-Public Use
  Company Number: FR-SANOFI-AVENTIS-2011SA043247

PATIENT
  Age: 79 Year
  Sex: Male

DRUGS (5)
  1. FLUINDIONE [Concomitant]
     Route: 065
  2. PRAVASTATIN SODIUM [Concomitant]
     Route: 065
  3. TAXOTERE [Suspect]
     Dosage: DOSE: 35 MG/M2 DAY 1 AND DAY 8 EVERY 21 DAYS
     Route: 042
  4. TAXOTERE [Interacting]
     Dosage: DOSE: 35 MG/M2 DAY 1 AND DAY 8 EVERY 21 DAYS
     Route: 042
  5. MULTAQ [Interacting]
     Indication: ATRIAL FIBRILLATION
     Route: 065

REACTIONS (14)
  - DRUG INTERACTION [None]
  - STOMATITIS [None]
  - PYREXIA [None]
  - SKIN LESION [None]
  - DIARRHOEA [None]
  - ACUTE RESPIRATORY FAILURE [None]
  - ERYTHEMA [None]
  - OVERDOSE [None]
  - CONJUNCTIVITIS [None]
  - MUCOSAL INFLAMMATION [None]
  - KERATITIS [None]
  - FEBRILE NEUTROPENIA [None]
  - CIRCULATORY COLLAPSE [None]
  - SEPTIC SHOCK [None]
